FAERS Safety Report 16729389 (Version 1)
Quarter: 2019Q3

REPORT INFORMATION
  Report Type: Report from Study
  Country: CA (occurrence: CA)
  Receive Date: 20190822
  Receipt Date: 20190822
  Transmission Date: 20191005
  Serious: Yes (Hospitalization, Other)
  Sender: FDA-Public Use
  Company Number: CA-ORION CORPORATION ORION PHARMA-TREX2019-2914

PATIENT
  Age: 46 Year
  Sex: Female
  Weight: 63 kg

DRUGS (20)
  1. ACTEMRA [Suspect]
     Active Substance: TOCILIZUMAB
     Route: 042
  2. ACTEMRA [Suspect]
     Active Substance: TOCILIZUMAB
     Route: 042
  3. ACTEMRA [Suspect]
     Active Substance: TOCILIZUMAB
     Indication: RHEUMATOID ARTHRITIS
     Route: 042
  4. ACTONEL [Concomitant]
     Active Substance: RISEDRONATE SODIUM
     Route: 065
  5. LYRICA [Concomitant]
     Active Substance: PREGABALIN
     Route: 065
  6. ACTEMRA [Suspect]
     Active Substance: TOCILIZUMAB
     Route: 042
  7. ACTEMRA [Suspect]
     Active Substance: TOCILIZUMAB
     Route: 042
  8. RITUXAN [Suspect]
     Active Substance: RITUXIMAB
     Indication: RHEUMATOID ARTHRITIS
     Route: 042
  9. METHOTREXATE (TRADE NAME UNKNOWN) [Suspect]
     Active Substance: METHOTREXATE
     Indication: PRODUCT USED FOR UNKNOWN INDICATION
     Route: 065
  10. ACTEMRA [Suspect]
     Active Substance: TOCILIZUMAB
     Route: 042
  11. CARBOCAL [Concomitant]
     Active Substance: CALCIUM CARBONATE
     Route: 048
  12. MOTRIN [Concomitant]
     Active Substance: IBUPROFEN
     Route: 065
  13. PANTOPRAZOLE SODIUM. [Concomitant]
     Active Substance: PANTOPRAZOLE SODIUM
     Route: 065
  14. FOLIC ACID. [Concomitant]
     Active Substance: FOLIC ACID
     Route: 065
  15. ACTEMRA [Suspect]
     Active Substance: TOCILIZUMAB
     Route: 042
  16. ACTEMRA [Suspect]
     Active Substance: TOCILIZUMAB
     Route: 042
  17. ACTEMRA [Suspect]
     Active Substance: TOCILIZUMAB
     Route: 042
  18. ACTEMRA [Suspect]
     Active Substance: TOCILIZUMAB
     Route: 042
  19. ACTEMRA [Suspect]
     Active Substance: TOCILIZUMAB
     Route: 042
  20. PREDNISONE. [Concomitant]
     Active Substance: PREDNISONE

REACTIONS (31)
  - Arthralgia [Not Recovered/Not Resolved]
  - Heart rate increased [Not Recovered/Not Resolved]
  - Nasal discharge discolouration [Not Recovered/Not Resolved]
  - Oedema [Not Recovered/Not Resolved]
  - Foot deformity [Not Recovered/Not Resolved]
  - Kidney infection [Not Recovered/Not Resolved]
  - Localised infection [Not Recovered/Not Resolved]
  - Tooth infection [Not Recovered/Not Resolved]
  - Drug ineffective [Not Recovered/Not Resolved]
  - Abdominal pain upper [Not Recovered/Not Resolved]
  - Nausea [Not Recovered/Not Resolved]
  - Pyrexia [Not Recovered/Not Resolved]
  - Vomiting [Not Recovered/Not Resolved]
  - Blood potassium decreased [Not Recovered/Not Resolved]
  - Cough [Not Recovered/Not Resolved]
  - Myalgia [Not Recovered/Not Resolved]
  - Nasopharyngitis [Not Recovered/Not Resolved]
  - Pyelonephritis [Not Recovered/Not Resolved]
  - Weight decreased [Not Recovered/Not Resolved]
  - Dizziness [Not Recovered/Not Resolved]
  - Epistaxis [Not Recovered/Not Resolved]
  - Gastroenteritis [Not Recovered/Not Resolved]
  - Headache [Not Recovered/Not Resolved]
  - Mouth ulceration [Not Recovered/Not Resolved]
  - Back pain [Not Recovered/Not Resolved]
  - Bronchitis [Not Recovered/Not Resolved]
  - Fatigue [Not Recovered/Not Resolved]
  - Medication error [Not Recovered/Not Resolved]
  - Diarrhoea [Not Recovered/Not Resolved]
  - Gastroenteritis viral [Not Recovered/Not Resolved]
  - Procedural pain [Not Recovered/Not Resolved]
